FAERS Safety Report 10358161 (Version 2)
Quarter: 2014Q3

REPORT INFORMATION
  Report Type: Spontaneous
  Country: US (occurrence: US)
  Receive Date: 20140801
  Receipt Date: 20140801
  Transmission Date: 20150326
  Serious: Yes (Hospitalization, Other)
  Sender: FDA-Public Use
  Company Number: US-009507513-2010SP004920

PATIENT
  Sex: Female
  Weight: 102.6 kg

DRUGS (5)
  1. HYDROCODONE [Concomitant]
     Active Substance: HYDROCODONE
     Indication: MIGRAINE
     Dosage: 5 MG, UNK
  2. NUVARING [Suspect]
     Active Substance: ETHINYL ESTRADIOL\ETONOGESTREL
     Indication: CONTRACEPTION
     Dosage: UNK
     Route: 067
     Dates: start: 20070719, end: 200805
  3. DIAMOX SEQUELS [Concomitant]
     Active Substance: ACETAZOLAMIDE
     Indication: PRODUCT USED FOR UNKNOWN INDICATION
     Dates: start: 2007
  4. PROPRANOLOL HYDROCHLORIDE. [Concomitant]
     Active Substance: PROPRANOLOL HYDROCHLORIDE
     Indication: PRODUCT USED FOR UNKNOWN INDICATION
     Dosage: UNK
     Dates: start: 2006, end: 20080504
  5. XANAX [Concomitant]
     Active Substance: ALPRAZOLAM
     Indication: SLEEP DISORDER THERAPY
     Dosage: 1 MG, UNK

REACTIONS (15)
  - Pulmonary infarction [Unknown]
  - Back pain [Unknown]
  - Pulmonary embolism [Unknown]
  - Migraine [Recovered/Resolved]
  - Treatment failure [Unknown]
  - Anxiety [Unknown]
  - Schizophrenia [Unknown]
  - Vitamin D deficiency [Unknown]
  - Depression [Unknown]
  - Pulmonary embolism [Unknown]
  - Bone disorder [Unknown]
  - Urinary tract infection [Unknown]
  - Intracranial pressure increased [Unknown]
  - Thrombosis [Unknown]
  - Insomnia [Unknown]

NARRATIVE: CASE EVENT DATE: 200711
